FAERS Safety Report 12962639 (Version 1)
Quarter: 2016Q4

REPORT INFORMATION
  Report Type: Spontaneous
  Country: DZ (occurrence: DZ)
  Receive Date: 20161121
  Receipt Date: 20161121
  Transmission Date: 20170207
  Serious: Yes (Death)
  Sender: FDA-Public Use
  Company Number: DZ-ASTRAZENECA-2016SF23559

PATIENT
  Age: 73 Year
  Sex: Female

DRUGS (5)
  1. ASPEGIC [Concomitant]
     Active Substance: ASPIRIN DL-LYSINE
     Indication: HYPERTENSION
     Dosage: 1 SACHET/DAY
  2. LEVOTHYROX [Concomitant]
     Active Substance: LEVOTHYROXINE
     Indication: HYPOTHYROIDISM
     Dosage: 1TABLET/DAY
     Route: 065
  3. ATACAND [Suspect]
     Active Substance: CANDESARTAN CILEXETIL
     Indication: HYPERTENSION
     Dosage: DAILY
     Route: 048
  4. CORVAZAL [Concomitant]
     Indication: ARRHYTHMIA
     Dosage: ??? TABLET / DAY
     Route: 065
  5. KALIGAN SIROP [Concomitant]
     Dosage: 1 COFFE SPOON 3 X /DAY

REACTIONS (1)
  - Death [Fatal]

NARRATIVE: CASE EVENT DATE: 20161107
